FAERS Safety Report 8911424 (Version 1)
Quarter: 2012Q4

REPORT INFORMATION
  Report Type: 
  Country: US (occurrence: US)
  Receive Date: 20121116
  Receipt Date: 20121116
  Transmission Date: 20130627
  Serious: Yes (Hospitalization, Other)
  Sender: FDA-Public Use
  Company Number: US-BAYER-2012-118009

PATIENT
  Age: 24 Year
  Sex: Female
  Weight: 90.7 kg

DRUGS (11)
  1. YASMIN [Suspect]
     Indication: CONTRACEPTION
  2. OCELLA [Suspect]
  3. YAZ [Suspect]
  4. FIBRE, DIETARY [Concomitant]
     Dosage: As needed
     Dates: start: 20110611
  5. ALBUTEROL [Concomitant]
     Dosage: As needed
     Dates: start: 20110613
  6. CELEXA [Concomitant]
     Dosage: 40 mg, UNK
     Route: 048
     Dates: start: 20110614
  7. COLACE [Concomitant]
     Dosage: 100 mg, UNK
     Route: 048
     Dates: start: 20110614
  8. MORPHINE [Concomitant]
     Indication: PAIN
  9. CITALOPRAM [Concomitant]
  10. NICOTINE [Concomitant]
  11. PERCOCET [Concomitant]

REACTIONS (2)
  - Pulmonary embolism [None]
  - Deep vein thrombosis [None]
